FAERS Safety Report 14302746 (Version 3)
Quarter: 2019Q1

REPORT INFORMATION
  Report Type: Spontaneous
  Country: US (occurrence: US)
  Receive Date: 20171219
  Receipt Date: 20190312
  Transmission Date: 20190417
  Serious: Yes (Other)
  Sender: FDA-Public Use
  Company Number: US-SA-2017SA257536

PATIENT
  Age: 57 Year
  Sex: Female
  Weight: 115.6 kg

DRUGS (26)
  1. VITAMIN D2 [Concomitant]
     Active Substance: ERGOCALCIFEROL
     Dosage: 1 DF,UNK
     Route: 048
     Dates: start: 20170622
  2. CLINDAMYCIN. [Concomitant]
     Active Substance: CLINDAMYCIN
     Dosage: 300 MG, QID
     Route: 048
     Dates: start: 20190111
  3. NORMAL SALINE [Concomitant]
     Active Substance: SODIUM CHLORIDE
     Dosage: 0.9 %, UNK
     Route: 042
     Dates: start: 20181112
  4. VICODIN [Concomitant]
     Active Substance: ACETAMINOPHEN\HYDROCODONE BITARTRATE
     Dosage: 1 DF,UNK
     Route: 065
     Dates: start: 20111114
  5. LANTUS [Concomitant]
     Active Substance: INSULIN GLARGINE
     Dosage: 28 DF,QD
     Route: 030
     Dates: start: 20171012
  6. LORATADINE. [Concomitant]
     Active Substance: LORATADINE
     Indication: PREMEDICATION
     Dosage: 10 MG, UNK
     Route: 048
     Dates: start: 20181112
  7. BENADRYL [Concomitant]
     Active Substance: DIPHENHYDRAMINE HYDROCHLORIDE
     Dosage: 1 DF,QD
     Route: 048
     Dates: start: 20171012
  8. CYCLOBENZAPRINE. [Concomitant]
     Active Substance: CYCLOBENZAPRINE
     Dosage: 1 DF,Q8H
     Route: 048
     Dates: start: 20161111
  9. LISINOPRIL. [Concomitant]
     Active Substance: LISINOPRIL
     Dosage: 1 DF,QD
     Route: 048
     Dates: start: 20170913
  10. CATHFLO ACTIVASE [Concomitant]
     Active Substance: ALTEPLASE
     Dosage: 2 MG,UNK
     Route: 065
     Dates: start: 20120319
  11. LUMIZYME [Suspect]
     Active Substance: ALGLUCOSIDASE ALFA
     Dosage: 2300 MG, QOW
     Route: 041
     Dates: start: 20120612
  12. FISH OIL [Concomitant]
     Active Substance: FISH OIL
     Dosage: 500 MG,UNK
     Route: 048
     Dates: start: 20171012
  13. GUAIFENESIN DM [Concomitant]
     Active Substance: DEXTROMETHORPHAN\DEXTROMETHORPHAN HYDROBROMIDE\GUAIFENESIN
     Dosage: 1 DF,TID
     Route: 048
     Dates: start: 20170203
  14. DIPHENHYDRAMINE. [Concomitant]
     Active Substance: DIPHENHYDRAMINE
     Indication: ANAPHYLACTIC REACTION
     Dosage: 25 MG, PRN
     Route: 048
     Dates: start: 20181112
  15. LUMIZYME [Suspect]
     Active Substance: ALGLUCOSIDASE ALFA
     Indication: GLYCOGEN STORAGE DISEASE TYPE II
     Dosage: 20.78 MG/KG,QOW
     Route: 041
  16. LUMIZYME [Suspect]
     Active Substance: ALGLUCOSIDASE ALFA
     Indication: GLYCOGEN STORAGE DISORDER
     Dosage: 20.78 MG/KG,QOW
     Route: 041
  17. HYDROCODONE/PARACETAMOL [Concomitant]
     Active Substance: ACETAMINOPHEN\HYDROCODONE BITARTRATE
     Dosage: 1 DF,PRN
     Route: 048
     Dates: start: 20131028
  18. SODIUM CHLORIDE. [Concomitant]
     Active Substance: SODIUM CHLORIDE
     Indication: FLUSHING
     Dosage: 0.9 %, UNK
     Route: 042
     Dates: start: 20181112
  19. ACTOS [Concomitant]
     Active Substance: PIOGLITAZONE HYDROCHLORIDE
     Dosage: 1 DF,QD
     Route: 048
     Dates: start: 20140629
  20. VITAMINS NOS [Concomitant]
     Active Substance: VITAMINS
     Dosage: 1 DF,UNK
     Route: 065
     Dates: start: 20111114
  21. ACETAMINOPHEN. [Concomitant]
     Active Substance: ACETAMINOPHEN
     Indication: PREMEDICATION
     Dosage: 650 MG, UNK
     Route: 048
     Dates: start: 20181112
  22. EPINEPHRINE. [Concomitant]
     Active Substance: EPINEPHRINE
     Indication: ANAPHYLACTIC REACTION
     Dosage: 0.3 MG, UNK
     Route: 030
     Dates: start: 20181112
  23. ONGLYZA [Concomitant]
     Active Substance: SAXAGLIPTIN HYDROCHLORIDE
     Dosage: 1 DF,QD
     Route: 048
     Dates: start: 20131028
  24. HEPARIN [Concomitant]
     Active Substance: HEPARIN SODIUM
     Indication: FLUSHING
     Dosage: 100 UNK, UNK
     Route: 042
     Dates: start: 20181112
  25. STERILE WATER [Concomitant]
     Active Substance: WATER
     Dosage: 1 UNK, UNK
     Route: 042
     Dates: start: 20181112
  26. BACLOFEN. [Concomitant]
     Active Substance: BACLOFEN
     Dosage: 20 MG, BID
     Route: 048

REACTIONS (3)
  - Clostridium difficile infection [Recovered/Resolved]
  - Catheter site injury [Not Recovered/Not Resolved]
  - Device related infection [Unknown]
